FAERS Safety Report 8233400 (Version 7)
Quarter: 2013Q2

REPORT INFORMATION
  Report Type: Spontaneous
  Country: US (occurrence: None)
  Receive Date: 20111101
  Receipt Date: 20130624
  Transmission Date: 20140414
  Serious: Yes (Death, Hospitalization)
  Sender: FDA-Public Use
  Company Number: AUR-APL-2011-05570

PATIENT
  Age: 74 Year
  Sex: Male
  Weight: 70.75 kg

DRUGS (9)
  1. METOPROLOL TARTRATE [Suspect]
     Indication: CARDIOVASCULAR EVENT PROPHYLAXIS
     Dosage: 50 MG (25 MG, 2 IN 1 D)
     Dates: start: 20100902
  2. BAPINEUZUMAB [Suspect]
     Indication: DEMENTIA ALZHEIMER^S TYPE
     Dosage: 0.0055 MG/KG (0.5 MG/KG,1 IN 13 WK), PARENTERAL
     Route: 051
     Dates: start: 20110831, end: 20110831
  3. PLAVIX [Suspect]
     Indication: CARDIOVASCULAR EVENT PROPHYLAXIS
     Dosage: (25 MG)
     Dates: start: 20100902
  4. ASPIRIN (ACETYLSALICYLIC ACID) [Suspect]
     Indication: PROPHYLAXIS
     Dosage: (81 MG)
     Dates: start: 20100831
  5. LOVASTATIN [Concomitant]
  6. FLORINEF ACETATE [Concomitant]
  7. VESICARE [Concomitant]
  8. ARICEPT [Concomitant]
  9. NAMENDA [Concomitant]

REACTIONS (29)
  - TENSION HEADACHE [None]
  - DRUG DOSE OMISSION [None]
  - SUBARACHNOID HAEMORRHAGE [None]
  - COMA [None]
  - BLOOD GLUCOSE INCREASED [None]
  - HAEMATOCRIT DECREASED [None]
  - HAEMOGLOBIN DECREASED [None]
  - CALCIUM IONISED DECREASED [None]
  - BLOOD PH INCREASED [None]
  - PO2 INCREASED [None]
  - BASE EXCESS INCREASED [None]
  - PCO2 DECREASED [None]
  - PLATELET COUNT DECREASED [None]
  - WHITE BLOOD CELL COUNT INCREASED [None]
  - RED BLOOD CELL COUNT DECREASED [None]
  - NEUTROPHIL PERCENTAGE INCREASED [None]
  - LYMPHOCYTE PERCENTAGE DECREASED [None]
  - BLOOD SODIUM INCREASED [None]
  - BLOOD POTASSIUM DECREASED [None]
  - BLOOD CHLORIDE INCREASED [None]
  - BLOOD BILIRUBIN INCREASED [None]
  - BLOOD OSMOLARITY INCREASED [None]
  - INTRAVENTRICULAR HAEMORRHAGE [None]
  - BLOOD PRESSURE INCREASED [None]
  - ANXIETY [None]
  - BRAIN OEDEMA [None]
  - ENCEPHALOMALACIA [None]
  - CEREBRAL VENTRICLE DILATATION [None]
  - CEREBRAL ATROPHY [None]
